FAERS Safety Report 6177568-0 (Version None)
Quarter: 2009Q2

REPORT INFORMATION
  Report Type: 
  Country: None (occurrence: None)
  Receive Date: 20090501
  Receipt Date: 20090501
  Transmission Date: 20091009
  Serious: Yes (Life-Threatening, Hospitalization)
  Sender: FDA-Public Use
  Company Number: None

PATIENT
  Age: 23 Year
  Sex: Female
  Weight: 45.6 kg

DRUGS (2)
  1. BACTRIM [Suspect]
     Indication: ACNE
     Dosage: PO
     Dates: end: 20090303
  2. MINOCYCLINE HCL [Concomitant]

REACTIONS (4)
  - OROPHARYNGEAL PAIN [None]
  - PYREXIA [None]
  - RASH MACULAR [None]
  - RASH MORBILLIFORM [None]
